FAERS Safety Report 10153999 (Version 1)
Quarter: 2014Q2

REPORT INFORMATION
  Report Type: Spontaneous
  Country: FR (occurrence: None)
  Receive Date: 20140502
  Receipt Date: 20140502
  Transmission Date: 20141212
  Serious: Yes (Life-Threatening)
  Sender: FDA-Public Use
  Company Number: 7284182

PATIENT
  Age: 69 Year
  Sex: Male

DRUGS (6)
  1. PREVISCAN (FLUINDIONE) (FLUINDIONE) [Suspect]
     Indication: THROMBOSIS PROPHYLAXIS
     Route: 048
     Dates: start: 200310
  2. LEVOTHYROX [Suspect]
     Indication: THYROIDITIS
     Route: 048
  3. METFORMIN (METFORMIN) (METFORMIN) [Suspect]
     Indication: TYPE 2 DIABETES MELLITUS
     Route: 048
     Dates: start: 200804
  4. COKENZEN [Suspect]
     Indication: PRODUCT USED FOR UNKNOWN INDICATION
  5. CORDARONE [Suspect]
     Indication: ATRIAL FIBRILLATION
     Route: 048
  6. ALLOPURINOL (ALLOPURINOL) (ALLOPURINOL) [Suspect]
     Indication: HYPERURICAEMIA
     Route: 048

REACTIONS (7)
  - Metastasis [None]
  - Shock haemorrhagic [None]
  - Road traffic accident [None]
  - Sternal fracture [None]
  - Type 2 diabetes mellitus [None]
  - Arrhythmia [None]
  - Disease recurrence [None]
